FAERS Safety Report 5695679-0 (Version None)
Quarter: 2008Q2

REPORT INFORMATION
  Report Type: 
  Country: None (occurrence: None)
  Receive Date: 20080407
  Receipt Date: 20080305
  Transmission Date: 20081010
  Serious: No
  Sender: FDA-Public Use
  Company Number: US-BAYER-200816639NA

PATIENT
  Age: 37 Year
  Sex: Female
  Weight: 56 kg

DRUGS (1)
  1. YAZ [Suspect]
     Indication: CONTRACEPTION
     Route: 048
     Dates: start: 20080205

REACTIONS (1)
  - WITHDRAWAL BLEEDING IRREGULAR [None]
